FAERS Safety Report 22083873 (Version 1)
Quarter: 2023Q1

REPORT INFORMATION
  Report Type: Spontaneous
  Country: JP (occurrence: None)
  Receive Date: 20230308
  Receipt Date: 20230308
  Transmission Date: 20230417
  Serious: Yes (Life-Threatening, Hospitalization)
  Sender: FDA-Public Use
  Company Number: None

PATIENT
  Age: 33 Year
  Sex: Male

DRUGS (3)
  1. DULOXETINE [Suspect]
     Active Substance: DULOXETINE
  2. ARIPIPRAZOLE [Suspect]
     Active Substance: ARIPIPRAZOLE
  3. IMIPRAMINE [Suspect]
     Active Substance: IMIPRAMINE

REACTIONS (13)
  - Suicide attempt [None]
  - Decreased appetite [None]
  - Suicidal ideation [None]
  - Headache [None]
  - Akathisia [None]
  - Tachycardia foetal [None]
  - Uterine hypertonus [None]
  - Apnoea [None]
  - Maternal exposure during pregnancy [None]
  - Foetal exposure during pregnancy [None]
  - Electroconvulsive therapy [None]
  - Drug intolerance [None]
  - Seizure [None]
